FAERS Safety Report 12395247 (Version 4)
Quarter: 2016Q3

REPORT INFORMATION
  Report Type: Spontaneous
  Country: US (occurrence: US)
  Receive Date: 20160523
  Receipt Date: 20160905
  Transmission Date: 20161109
  Serious: No
  Sender: FDA-Public Use
  Company Number: US-PFIZER INC-2016257710

PATIENT
  Age: 54 Year
  Sex: Male

DRUGS (16)
  1. MORPHINE SULPHATE [Interacting]
     Active Substance: MORPHINE SULFATE
     Indication: PAIN
     Dosage: 30 MG, 3X/DAY
  2. LISINOPRIL. [Concomitant]
     Active Substance: LISINOPRIL
     Dosage: 10 MG, UNK
  3. OMEGA 3 ACID [Concomitant]
     Dosage: UNK
  4. MORPHINE SULPHATE [Interacting]
     Active Substance: MORPHINE SULFATE
     Indication: PAIN
     Dosage: 15 MG, 3X/DAY
  5. NEXIUM [Concomitant]
     Active Substance: ESOMEPRAZOLE MAGNESIUM
     Dosage: UNK
  6. TIZANIDINE. [Concomitant]
     Active Substance: TIZANIDINE
     Dosage: 4 MG, UNK
  7. VITAMIN D3 [Concomitant]
     Active Substance: CHOLECALCIFEROL
     Dosage: 1000 IU, UNK
  8. VIAGRA [Interacting]
     Active Substance: SILDENAFIL CITRATE
     Dosage: 100 MG, 2X/WEEK(NOT MORE THAN TWICE A WEEK MAXIMUM)
     Route: 048
  9. BUSPIRONE [Concomitant]
     Active Substance: BUSPIRONE HYDROCHLORIDE
     Dosage: 15 MG, UNK
  10. VALIUM [Concomitant]
     Active Substance: DIAZEPAM
     Dosage: 10 MG, UNK
  11. PROAIR HFA [Concomitant]
     Active Substance: ALBUTEROL SULFATE
     Dosage: 90 UG, UNK
     Route: 055
  12. QVAR HFA [Concomitant]
     Dosage: 80 UG, UNK
  13. VIAGRA [Suspect]
     Active Substance: SILDENAFIL CITRATE
     Indication: LIBIDO DECREASED
     Dosage: 100 MG, 1X/DAY
     Route: 048
  14. ATORVASTATIN [Concomitant]
     Active Substance: ATORVASTATIN
     Dosage: 20 MG, UNK
  15. GABAPENTIN. [Concomitant]
     Active Substance: GABAPENTIN
     Dosage: 600 MG, UNK
  16. TRAZODONE [Concomitant]
     Active Substance: TRAZODONE HYDROCHLORIDE
     Dosage: 50 MG, UNK

REACTIONS (4)
  - Drug interaction [Unknown]
  - Pain [Unknown]
  - Drug ineffective [Unknown]
  - Condition aggravated [Unknown]
